FAERS Safety Report 19053073 (Version 2)
Quarter: 2021Q1

REPORT INFORMATION
  Report Type: Spontaneous
  Country: US (occurrence: US)
  Receive Date: 20210324
  Receipt Date: 20210330
  Transmission Date: 20210420
  Serious: No
  Sender: FDA-Public Use
  Company Number: NVSC2021US067966

PATIENT
  Age: 73 Year
  Sex: Male

DRUGS (2)
  1. VOLTAREN EMULGEL [Suspect]
     Active Substance: DICLOFENAC DIETHYLAMINE
     Indication: ARTHRALGIA
     Dosage: UNK UNK, QID
     Route: 065
     Dates: start: 20210315
  2. VOLTAREN EMULGEL [Suspect]
     Active Substance: DICLOFENAC DIETHYLAMINE
     Indication: ARTHRITIS

REACTIONS (3)
  - Fatigue [Not Recovered/Not Resolved]
  - Therapeutic response unexpected [Unknown]
  - Product use in unapproved indication [Unknown]

NARRATIVE: CASE EVENT DATE: 20210315
